FAERS Safety Report 11243939 (Version 4)
Quarter: 2015Q3

REPORT INFORMATION
  Report Type: Spontaneous
  Country: FR (occurrence: FR)
  Receive Date: 20150707
  Receipt Date: 20150730
  Transmission Date: 20151125
  Serious: Yes (Hospitalization)
  Sender: FDA-Public Use
  Company Number: FR-PFIZER INC-2015220244

PATIENT
  Age: 64 Year
  Sex: Female

DRUGS (10)
  1. LOXEN LP [Suspect]
     Active Substance: NICARDIPINE
     Dosage: 2 DF, DAILY
     Route: 048
     Dates: start: 20150328, end: 20150528
  2. VENOFER [Suspect]
     Active Substance: IRON SUCROSE
     Dosage: UNK
     Route: 042
     Dates: start: 201502
  3. FUROSEMIDE. [Concomitant]
     Active Substance: FUROSEMIDE
     Dosage: 40 MG, DAILY
  4. BISOPROLOL [Concomitant]
     Active Substance: BISOPROLOL
     Dosage: DOSE INCREASED
     Dates: start: 201502
  5. CORDARONE [Suspect]
     Active Substance: AMIODARONE HYDROCHLORIDE
     Dosage: 2 DF, DAILY
     Dates: start: 201503, end: 20150528
  6. VENOFER [Suspect]
     Active Substance: IRON SUCROSE
     Dosage: UNK
     Route: 042
     Dates: start: 201504
  7. ELIQUIS [Suspect]
     Active Substance: APIXABAN
     Dosage: 2 DF, DAILY
     Route: 048
     Dates: start: 20150315, end: 20150528
  8. INEXIUM [Concomitant]
     Active Substance: ESOMEPRAZOLE
     Dosage: 40 MG, 3X/DAY
  9. BISOPROLOL [Concomitant]
     Active Substance: BISOPROLOL
     Dosage: UNK UNK, 2X/DAY
  10. NEURONTIN [Suspect]
     Active Substance: GABAPENTIN
     Dosage: 100 MG, 3X/DAY
     Dates: start: 201504, end: 20150528

REACTIONS (1)
  - Thrombocytopenia [Unknown]

NARRATIVE: CASE EVENT DATE: 20150528
